FAERS Safety Report 8592249-1 (Version None)
Quarter: 2012Q3

REPORT INFORMATION
  Report Type: 
  Country: None (occurrence: None)
  Receive Date: 20120814
  Receipt Date: 20120808
  Transmission Date: 20120928
  Serious: Yes (Hospitalization)
  Sender: FDA-Public Use
  Company Number: US-PFIZER INC-2012169782

PATIENT
  Age: 73 Year
  Sex: Female
  Weight: 60.771 kg

DRUGS (11)
  1. DEXAMETHASONE SODIUM PHOSPHATE [Suspect]
     Indication: BRAIN OEDEMA
     Dosage: 2 MG, 1X/DAY
     Route: 048
     Dates: start: 20120506, end: 20120711
  2. RITALIN [Concomitant]
     Indication: FATIGUE
     Dosage: UNK
  3. PRILOSEC [Concomitant]
     Indication: ABDOMINAL DISCOMFORT
     Dosage: UNK
  4. COUMADIN [Concomitant]
     Indication: ATRIAL FIBRILLATION
     Dosage: UNK
     Dates: end: 20120711
  5. PREMARIN [Concomitant]
     Dosage: UNK
  6. SYNTHROID [Concomitant]
     Indication: THYROID THERAPY
     Dosage: UNK
  7. CRIZOTINIB [Suspect]
     Indication: NON-SMALL CELL LUNG CANCER
     Dosage: 250 MG, 2X/DAY
     Route: 048
     Dates: start: 20100621, end: 20120724
  8. VICODIN [Concomitant]
     Dosage: UNK
  9. METOPROLOL [Concomitant]
     Indication: HYPERTENSION
     Dosage: UNK
  10. ATIVAN [Concomitant]
     Indication: SLEEP DISORDER
     Dosage: UNK
  11. LACTULOSE [Concomitant]
     Indication: CONSTIPATION
     Dosage: UNK

REACTIONS (1)
  - PERIDIVERTICULAR ABSCESS [None]
